FAERS Safety Report 6529990-8 (Version None)
Quarter: 2010Q1

REPORT INFORMATION
  Report Type: 
  Country: None (occurrence: None)
  Receive Date: 20100107
  Receipt Date: 20091229
  Transmission Date: 20100710
  Serious: Yes (Death, Other)
  Sender: FDA-Public Use
  Company Number: US-PFIZER INC-2009308670

PATIENT
  Sex: Female
  Weight: 53.515 kg

DRUGS (2)
  1. SUTENT [Suspect]
     Indication: RENAL CELL CARCINOMA
     Dosage: 50 MG, 1X/DAY
     Route: 048
     Dates: start: 20091117
  2. ZOMETA [Concomitant]
     Dosage: UNK
     Dates: start: 20091026, end: 20091123

REACTIONS (3)
  - BLOOD CREATININE INCREASED [None]
  - DEATH [None]
  - THROMBOCYTOPENIA [None]
